FAERS Safety Report 4734272-0 (Version None)
Quarter: 2005Q3

REPORT INFORMATION
  Report Type: 
  Country: None (occurrence: None)
  Receive Date: 20050804
  Receipt Date: 20050520
  Transmission Date: 20060218
  Serious: Yes (Death, Life-Threatening, Hospitalization, Other)
  Sender: FDA-Public Use
  Company Number: FR-BRACCO-BRO-008697

PATIENT
  Age: 66 Year
  Sex: Male

DRUGS (17)
  1. IOPAMIDOL [Suspect]
     Indication: DYSPHAGIA
     Route: 042
     Dates: start: 20050223, end: 20050223
  2. IOPAMIDOL [Suspect]
     Route: 042
     Dates: start: 20050223, end: 20050223
  3. IOPAMIDOL [Suspect]
     Route: 042
     Dates: start: 20050322, end: 20050322
  4. ATARAX [Suspect]
     Route: 048
     Dates: start: 20050310, end: 20050326
  5. AUGMENTIN [Suspect]
     Indication: PNEUMONIA
     Route: 048
     Dates: start: 20050308, end: 20050321
  6. OFLOCET [Suspect]
     Indication: PNEUMONIA
     Route: 048
     Dates: start: 20050310, end: 20050321
  7. EUPANTOL [Suspect]
     Route: 048
     Dates: start: 20050310, end: 20050326
  8. EFFERALGAN [Suspect]
     Route: 048
     Dates: start: 20050223
  9. MICROPAQUE ^GUERBET^ [Suspect]
     Route: 048
     Dates: start: 20050322, end: 20050322
  10. ELISOR [Concomitant]
     Route: 048
  11. COVERSYL [Concomitant]
     Route: 048
  12. FORLAX [Concomitant]
     Route: 050
  13. EDUCTYL [Concomitant]
     Route: 050
  14. DURAGESIC-100 [Concomitant]
     Route: 050
  15. LOVENOX [Concomitant]
     Route: 050
  16. CORTANCYL [Concomitant]
     Route: 050
  17. ALLOPURINOL [Concomitant]
     Route: 048
     Dates: end: 20050330

REACTIONS (15)
  - ATRIAL FIBRILLATION [None]
  - BLOOD PH INCREASED [None]
  - CARDIAC FAILURE [None]
  - FEBRILE CONVULSION [None]
  - GENERAL PHYSICAL HEALTH DETERIORATION [None]
  - HAEMOGLOBIN DECREASED [None]
  - HEPARIN-INDUCED THROMBOCYTOPENIA [None]
  - PLEURAL EFFUSION [None]
  - PRODUCTIVE COUGH [None]
  - PULMONARY CONGESTION [None]
  - PULMONARY OEDEMA [None]
  - SEPTIC SHOCK [None]
  - SPUTUM PURULENT [None]
  - TOXIC EPIDERMAL NECROLYSIS [None]
  - TOXIC SKIN ERUPTION [None]
